FAERS Safety Report 11048171 (Version 3)
Quarter: 2015Q2

REPORT INFORMATION
  Report Type: Spontaneous
  Country: IT (occurrence: IT)
  Receive Date: 20150420
  Receipt Date: 20150511
  Transmission Date: 20150821
  Serious: Yes (Other)
  Sender: FDA-Public Use
  Company Number: IT-SA-2015SA049194

PATIENT
  Age: 80 Year
  Sex: Female

DRUGS (5)
  1. KCL-RETARD [Suspect]
     Active Substance: POTASSIUM CHLORIDE
     Dosage: STRENGTH: 600 MG
     Route: 048
  2. ACENOCOUMAROL [Concomitant]
     Active Substance: ACENOCOUMAROL
     Route: 048
  3. FLECAINIDE [Concomitant]
     Active Substance: FLECAINIDE
     Route: 048
  4. LASIX [Suspect]
     Active Substance: FUROSEMIDE
     Indication: HYPERTENSION
     Route: 048
  5. AMIODARONE [Concomitant]
     Active Substance: AMIODARONE
     Route: 048

REACTIONS (4)
  - Loss of consciousness [Recovered/Resolved]
  - Dehydration [Unknown]
  - Treatment noncompliance [Unknown]
  - Hypokalaemia [Unknown]

NARRATIVE: CASE EVENT DATE: 20140529
